FAERS Safety Report 8987343 (Version 1)
Quarter: 2012Q4

REPORT INFORMATION
  Report Type: Report from Study
  Country: RU (occurrence: RU)
  Receive Date: 20121226
  Receipt Date: 20121226
  Transmission Date: 20130627
  Serious: Yes (Other)
  Sender: FDA-Public Use
  Company Number: RU-ROCHE-1167456

PATIENT
  Age: 56 Year
  Sex: Female

DRUGS (4)
  1. CAPECITABINE [Suspect]
     Indication: BREAST CANCER METASTATIC
     Route: 065
     Dates: end: 201005
  2. CAPECITABINE [Suspect]
     Route: 065
     Dates: start: 201010, end: 201203
  3. NAVELBINE [Suspect]
     Indication: BREAST CANCER METASTATIC
     Route: 065
  4. TAMOXIFEN [Concomitant]
     Indication: BREAST CANCER METASTATIC
     Route: 065

REACTIONS (2)
  - Bone marrow toxicity [Unknown]
  - Palmar-plantar erythrodysaesthesia syndrome [Unknown]
